FAERS Safety Report 9783824 (Version 2)
Quarter: 2014Q1

REPORT INFORMATION
  Report Type: Spontaneous
  Country: US (occurrence: US)
  Receive Date: 20131226
  Receipt Date: 20140115
  Transmission Date: 20141002
  Serious: No
  Sender: FDA-Public Use
  Company Number: US-PFIZER INC-2013366006

PATIENT
  Age: 62 Year
  Sex: Female

DRUGS (2)
  1. XELJANZ [Suspect]
     Dosage: 5MG, 2X/DAY
  2. XELJANZ [Suspect]
     Dosage: 5 MG, 1X/DAY

REACTIONS (2)
  - Diarrhoea [Unknown]
  - Dehydration [Unknown]
